FAERS Safety Report 11537653 (Version 1)
Quarter: 2015Q3

REPORT INFORMATION
  Report Type: Other
  Country: IT (occurrence: IT)
  Receive Date: 20150922
  Receipt Date: 20150922
  Transmission Date: 20151125
  Serious: Yes (Hospitalization, Other)
  Sender: FDA-Public Use
  Company Number: IT-APOTEX-2015AP012740

PATIENT
  Age: 95 Year
  Sex: Male

DRUGS (5)
  1. AMLODIPINE [Suspect]
     Active Substance: AMLODIPINE BESYLATE
     Indication: HYPERTENSION
     Dosage: 2.5 MG DAILY
     Route: 048
     Dates: start: 20150703, end: 20150728
  2. TALOFEN [Concomitant]
     Active Substance: PROMAZINE HYDROCHLORIDE
     Indication: NEUROSIS
     Dosage: 20 GTT, UNK
     Route: 048
     Dates: end: 20150907
  3. CITALOPRAM [Suspect]
     Active Substance: CITALOPRAM HYDROBROMIDE
     Indication: POST-TRAUMATIC STRESS DISORDER
     Dosage: 20 MG DAILY
     Route: 048
     Dates: start: 20150703, end: 20150728
  4. HALCION [Concomitant]
     Active Substance: TRIAZOLAM
     Indication: INSOMNIA
     Dosage: 125 ?G, UNK
     Route: 048
     Dates: start: 20150703, end: 20150728
  5. SIRIO [Suspect]
     Active Substance: CARBIDOPA\MELEVODOPA
     Indication: PARKINSON^S DISEASE
     Dosage: 125 DF DAILY
     Route: 030
     Dates: start: 20141028, end: 20150728

REACTIONS (3)
  - Off label use [Recovered/Resolved]
  - Bradycardia [Recovered/Resolved]
  - Hypertensive crisis [Recovered/Resolved]

NARRATIVE: CASE EVENT DATE: 20150703
